FAERS Safety Report 8086104-3 (Version None)
Quarter: 2012Q1

REPORT INFORMATION
  Report Type: 
  Country: None (occurrence: None)
  Receive Date: 20120128
  Receipt Date: 20110414
  Transmission Date: 20120608
  Serious: No
  Sender: FDA-Public Use
  Company Number: US-ABBOTT-11P-163-0718932-00

PATIENT
  Sex: Female

DRUGS (1)
  1. HUMIRA [Suspect]
     Indication: RHEUMATOID ARTHRITIS
     Dates: start: 20060101, end: 20110101

REACTIONS (5)
  - FATIGUE [None]
  - BURNING SENSATION [None]
  - RHEUMATOID ARTHRITIS [None]
  - NEPHROPATHY [None]
  - NAUSEA [None]
